FAERS Safety Report 5457431-0 (Version None)
Quarter: 2007Q3

REPORT INFORMATION
  Report Type: 
  Country: None (occurrence: None)
  Receive Date: 20070918
  Receipt Date: 20070906
  Transmission Date: 20080115
  Serious: Yes (Hospitalization)
  Sender: FDA-Public Use
  Company Number: US-GENENTECH-247676

PATIENT
  Sex: Male

DRUGS (5)
  1. XOLAIR [Suspect]
     Indication: DRUG USE FOR UNKNOWN INDICATION
  2. EPINEPHRINE [Concomitant]
     Indication: URTICARIA
  3. PREDNISONE [Concomitant]
     Indication: URTICARIA
     Dosage: 40 MG, UNK
  4. BENADRYL [Concomitant]
     Indication: URTICARIA
     Dosage: 50 MG, QID
  5. NEBULIZER (UNK INGREDIENTS) [Concomitant]
     Indication: WHEEZING

REACTIONS (3)
  - PNEUMONIA [None]
  - URTICARIA [None]
  - VOMITING [None]
